FAERS Safety Report 5546752-9 (Version None)
Quarter: 2007Q4

REPORT INFORMATION
  Report Type: 
  Country: None (occurrence: None)
  Receive Date: 20071207
  Receipt Date: 20071207
  Transmission Date: 20080405
  Serious: Yes (Hospitalization)
  Sender: FDA-Public Use
  Company Number: None

PATIENT
  Age: 61 Year
  Sex: Male
  Weight: 92.5 kg

DRUGS (9)
  1. BORTEZOMIB [Suspect]
     Indication: MANTLE CELL LYMPHOMA
     Dosage: 2.7MG D1+4 IV
     Route: 042
     Dates: start: 20071119
  2. BORTEZOMIB [Suspect]
     Indication: MANTLE CELL LYMPHOMA
     Dosage: 2.7MG D1+4 IV
     Route: 042
     Dates: start: 20071122
  3. CYCLOPHOSPHAMIDE [Suspect]
     Indication: MANTLE CELL LYMPHOMA
     Dosage: 630MG D1,2,3 IV
     Route: 042
     Dates: start: 20071119
  4. CYCLOPHOSPHAMIDE [Suspect]
     Indication: MANTLE CELL LYMPHOMA
     Dosage: 630MG D1,2,3 IV
     Route: 042
     Dates: start: 20071120
  5. CYCLOPHOSPHAMIDE [Suspect]
     Indication: MANTLE CELL LYMPHOMA
     Dosage: 630MG D1,2,3 IV
     Route: 042
     Dates: start: 20071121
  6. RITUXIMAB [Suspect]
     Indication: MANTLE CELL LYMPHOMA
     Dosage: 90MG IV D1
     Route: 042
     Dates: start: 20071119
  7. DOXORUBICIN HCL [Suspect]
     Dosage: 52MG D1-2 CIV
     Route: 042
     Dates: start: 20071119, end: 20071120
  8. DEXAMETHASONE TAB [Suspect]
     Dosage: 40MG PO
     Route: 048
     Dates: start: 20071119, end: 20071122
  9. VINCRISTINE [Suspect]
     Dosage: 1MG D3 IV
     Route: 042
     Dates: start: 20071121

REACTIONS (5)
  - FEBRILE NEUTROPENIA [None]
  - HAEMOGLOBIN ABNORMAL [None]
  - PLATELET COUNT ABNORMAL [None]
  - RHINITIS [None]
  - SINUSITIS [None]
